FAERS Safety Report 23358403 (Version 1)
Quarter: 2024Q1

REPORT INFORMATION
  Report Type: Spontaneous
  Country: GB (occurrence: GB)
  Receive Date: 20240102
  Receipt Date: 20240102
  Transmission Date: 20240410
  Serious: Yes (Other)
  Sender: FDA-Public Use
  Company Number: None

PATIENT

DRUGS (25)
  1. PREDNISOLONE [Suspect]
     Active Substance: PREDNISOLONE
     Dosage: 5 MG TABLET
  2. DIETARY SUPPLEMENT [Concomitant]
     Active Substance: DIETARY SUPPLEMENT
     Dosage: 200 ML, TID (AS DIRECTED)
     Dates: start: 20230829, end: 20230927
  3. DIETARY SUPPLEMENT [Concomitant]
     Active Substance: DIETARY SUPPLEMENT
     Dosage: UNK (TAKE UP TO TWO EACH DAY IN BETWEEN REGULAR FORT...)
     Dates: start: 20231002
  4. DIETARY SUPPLEMENT [Concomitant]
     Active Substance: DIETARY SUPPLEMENT
     Dosage: UNK (USE AS DIRECTED)
     Dates: start: 20230925, end: 20231009
  5. AMOXICILLIN [Concomitant]
     Active Substance: AMOXICILLIN
     Dosage: 1 DOSAGE FORM, TID
     Dates: start: 20231120, end: 20231127
  6. TIOTROPIUM BROMIDE [Concomitant]
     Active Substance: TIOTROPIUM BROMIDE
     Dosage: 1 DOSAGE FORM, QD
     Route: 055
     Dates: start: 20230201
  7. CARBOCYSTEINE [Concomitant]
     Active Substance: CARBOCYSTEINE
     Dosage: 2 DOSAGE FORM, TID
     Dates: start: 20230201
  8. DERMOL [Concomitant]
     Active Substance: BENZALKONIUM CHLORIDE\CHLORHEXIDINE HYDROCHLORIDE\ISOPROPYL MYRISTATE\PARAFFIN
     Dosage: UNK (APPLY AS DIRECTED AS A SKIN MOISTURISER AND AS)
     Dates: start: 20231103
  9. DIAZEPAM [Concomitant]
     Active Substance: DIAZEPAM
     Indication: Dyspnoea
     Dosage: 1 DOSAGE FORM, QID (UP TO FOUR TIMES PER DAY)
     Dates: start: 20231129, end: 20231206
  10. DOCUSATE SODIUM [Concomitant]
     Active Substance: DOCUSATE SODIUM
     Indication: Constipation
     Dosage: 2 DOSAGE FORM, BID (AS NEEDED)
     Dates: start: 20230202
  11. FERROUS FUMARATE [Concomitant]
     Active Substance: FERROUS FUMARATE
     Dosage: 10 ML
     Dates: start: 20230619, end: 20230925
  12. BECLOMETHASONE\FORMOTEROL [Concomitant]
     Active Substance: BECLOMETHASONE\FORMOTEROL
     Dosage: 2 DOSAGE FORM (PUFFS)
     Dates: start: 20230609
  13. BUTYLSCOPOLAMINE BROMIDE [Concomitant]
     Active Substance: BUTYLSCOPOLAMINE BROMIDE
     Dosage: 2 DOSAGE FORM (UP TO 4 TIMES/DAY FOR EXCESSIVE SECRET)
     Dates: start: 20230620, end: 20230925
  14. IPRATROPIUM BROMIDE [Concomitant]
     Active Substance: IPRATROPIUM BROMIDE\IPRATROPIUM BROMIDE ANHYDROUS
     Indication: Dyspnoea
     Dosage: UNK, BID (USE ONE IN NEBULISER UP TO TWICE DAILY)
     Dates: start: 20231127
  15. LORAZEPAM [Concomitant]
     Active Substance: LORAZEPAM
     Dosage: 0.5 DOSAGE FORM, PRN
     Dates: start: 20231127
  16. MACROGOL COMPOUND [Concomitant]
     Dosage: 1 DOSAGE FORM, BID
     Dates: start: 20230619
  17. METOCLOPRAMIDE [Concomitant]
     Active Substance: METOCLOPRAMIDE
     Dosage: 1 DOSAGE FORM, TID (UP TO THREE TIMES A DAY.)
     Dates: start: 20230810
  18. MORPHINE SULFATE [Concomitant]
     Active Substance: MORPHINE SULFATE
     Dosage: UNK (TAKE 2.5ML - 5ML (5MG-10MG) EVERY FOUR HOURS WH.)
     Dates: start: 20230517
  19. NORTRIPTYLINE [Concomitant]
     Active Substance: NORTRIPTYLINE
     Dosage: 1 DOSAGE FORM, QD, NIGHT
     Dates: start: 20230201
  20. NYSTATIN [Concomitant]
     Active Substance: NYSTATIN
     Dosage: 1 ML, USE IN THE MOUTH AS DIRECTED
     Dates: start: 20231127, end: 20231204
  21. OMEPRAZOLE [Concomitant]
     Active Substance: OMEPRAZOLE
     Dosage: 1 DOSAGE FORM, QD (TO HELP PREVENT IND...)
     Dates: start: 20230907
  22. ACETAMINOPHEN [Concomitant]
     Active Substance: ACETAMINOPHEN
     Dosage: UNK (IF WEIGHT BETWEEN 30KG AND 39KG: DOSE REDUCTION...)
     Dates: start: 20230620
  23. ALBUTEROL [Concomitant]
     Active Substance: ALBUTEROL
     Indication: Dyspnoea
     Dosage: UNK, AS ADVISED BY HOSPITAL TEAM
     Dates: start: 20231127
  24. SODIUM CHLORIDE [Concomitant]
     Active Substance: SODIUM CHLORIDE
     Dosage: UNK, USE AS DIRECTED
     Dates: start: 20231127
  25. VENTOLIN [Concomitant]
     Active Substance: ALBUTEROL SULFATE
     Dosage: 2 DOSAGE FORM (WHEN NEEDED UP)
     Route: 055
     Dates: start: 20230201

REACTIONS (3)
  - Psychomotor hyperactivity [Unknown]
  - Restlessness [Unknown]
  - Anxiety [Recovered/Resolved]
